FAERS Safety Report 5021411-X (Version None)
Quarter: 2006Q2

REPORT INFORMATION
  Report Type: 
  Country: None (occurrence: None)
  Receive Date: 20060608
  Receipt Date: 20060517
  Transmission Date: 20061013
  Serious: Yes (Other)
  Sender: FDA-Public Use
  Company Number: PHBS2006PT07583

PATIENT
  Age: 63 Year
  Sex: Female
  Weight: 60 kg

DRUGS (15)
  1. CYCLOPHOSPHAMIDE [Concomitant]
     Indication: BREAST NEOPLASM
     Route: 042
     Dates: start: 20050422, end: 20051123
  2. RADIOTHERAPY [Concomitant]
     Route: 065
     Dates: start: 20040101
  3. ZOMETA [Suspect]
     Dosage: 4 MG, EVERY 4 WEEKS
     Route: 042
     Dates: start: 20040101, end: 20051201
  4. LETROZOLE [Concomitant]
     Indication: BREAST NEOPLASM
     Route: 048
     Dates: start: 20031201, end: 20050201
  5. DOCETAXEL [Concomitant]
     Route: 042
     Dates: start: 20060301
  6. TRAMADOL HYDROCHLORIDE [Concomitant]
     Route: 048
     Dates: start: 20051201
  7. DICLOFENAC SODIUM [Concomitant]
     Route: 048
     Dates: start: 20051201
  8. PARACETAMOL [Concomitant]
     Indication: PAIN
     Route: 048
  9. EXEMESTANE [Concomitant]
     Indication: BREAST NEOPLASM
     Dosage: 25 MG/D
     Route: 048
     Dates: start: 20050201, end: 20050401
  10. FLUOROURACIL [Concomitant]
     Indication: BREAST NEOPLASM
     Route: 042
     Dates: start: 20050422, end: 20051123
  11. OMEPRAZOLE [Concomitant]
     Route: 048
     Dates: start: 20051201
  12. PREDNISOLONE [Concomitant]
     Route: 048
     Dates: start: 20051201
  13. METHOTREXATE [Concomitant]
     Indication: BREAST NEOPLASM
     Route: 042
     Dates: start: 20050422, end: 20051123
  14. NEUPOGEN [Concomitant]
     Route: 058
     Dates: start: 20050811, end: 20050814
  15. FULVESTRANT [Concomitant]
     Indication: BREAST NEOPLASM
     Route: 030
     Dates: start: 20051123, end: 20060316

REACTIONS (2)
  - OSTEONECROSIS [None]
  - TOOTHACHE [None]
